FAERS Safety Report 9421090 (Version 1)
Quarter: 2013Q3

REPORT INFORMATION
  Report Type: Spontaneous
  Country: IT (occurrence: IT)
  Receive Date: 20130724
  Receipt Date: 20130724
  Transmission Date: 20140515
  Serious: Yes (Hospitalization)
  Sender: FDA-Public Use
  Company Number: 2013AP006632

PATIENT
  Sex: Male

DRUGS (3)
  1. RAMIPRIL [Suspect]
  2. DICLOFENAC SODIUM [Suspect]
  3. GABAPENTIN [Suspect]

REACTIONS (2)
  - Intentional self-injury [None]
  - Sopor [None]
